FAERS Safety Report 8561525-0 (Version None)
Quarter: 2012Q3

REPORT INFORMATION
  Report Type: 
  Country: None (occurrence: None)
  Receive Date: 20120802
  Receipt Date: 20120724
  Transmission Date: 20120928
  Serious: Yes (Other)
  Sender: FDA-Public Use
  Company Number: US-JNJFOC-20120714102

PATIENT
  Age: 76 Year
  Sex: Male
  Weight: 102.06 kg

DRUGS (6)
  1. MOTRIN IB [Suspect]
     Route: 048
  2. YEAST [Concomitant]
     Indication: BLOOD CHOLESTEROL INCREASED
     Route: 065
  3. AVANDIA [Concomitant]
     Indication: DIABETES MELLITUS
     Route: 065
  4. MOTRIN IB [Suspect]
     Indication: PAIN
     Dosage: 200MG/CAPLET, 2 CAPLETS, ONCE DAILY AS NEEDED
     Route: 048
     Dates: start: 20120722, end: 20120724
  5. COD LIVER OIL [Concomitant]
     Indication: ROUTINE HEALTH MAINTENANCE
     Route: 065
  6. LISINOPRIL AND HYDROCHLOROTHIAZIDE [Suspect]
     Indication: HYPERTENSION
     Dosage: 10/12.5 MG ONCE DAILY
     Route: 065

REACTIONS (3)
  - MICTURITION FREQUENCY DECREASED [None]
  - BLOOD PRESSURE DECREASED [None]
  - THERAPEUTIC RESPONSE UNEXPECTED [None]
